FAERS Safety Report 11724127 (Version 1)
Quarter: 2015Q4

REPORT INFORMATION
  Report Type: Report from Study
  Country: MX (occurrence: MX)
  Receive Date: 20151111
  Receipt Date: 20151111
  Transmission Date: 20160304
  Serious: Yes (Other)
  Sender: FDA-Public Use
  Company Number: PHHY2015MX138711

PATIENT
  Age: 66 Year
  Sex: Female
  Weight: 87 kg

DRUGS (2)
  1. EXEMESTANE. [Concomitant]
     Active Substance: EXEMESTANE
     Indication: PRODUCT USED FOR UNKNOWN INDICATION
     Dosage: UNK
     Route: 065
  2. AFINITOR [Suspect]
     Active Substance: EVEROLIMUS
     Indication: BREAST CANCER METASTATIC
     Dosage: 5 MG, QD (IN FASTING)
     Route: 065
     Dates: start: 201406, end: 201507

REACTIONS (4)
  - Malignant neoplasm progression [Unknown]
  - Tumour marker increased [Not Recovered/Not Resolved]
  - Spinal column injury [Unknown]
  - Blood glucose increased [Recovered/Resolved]

NARRATIVE: CASE EVENT DATE: 201406
